FAERS Safety Report 17688153 (Version 1)
Quarter: 2020Q2

REPORT INFORMATION
  Report Type: Other
  Country: US (occurrence: US)
  Receive Date: 20200421
  Receipt Date: 20200421
  Transmission Date: 20200714
  Serious: Yes (Death)
  Sender: FDA-Public Use
  Company Number: US-ACORDA-ACO_164606_2020

PATIENT
  Age: 80 Year
  Sex: Male

DRUGS (1)
  1. INBRIJA [Suspect]
     Active Substance: LEVODOPA
     Indication: PRODUCT USED FOR UNKNOWN INDICATION
     Dosage: 84 MILLIGRAM, PRN
     Route: 048
     Dates: start: 202003

REACTIONS (1)
  - Death [Fatal]

NARRATIVE: CASE EVENT DATE: 20200331
